FAERS Safety Report 16895892 (Version 1)
Quarter: 2019Q4

REPORT INFORMATION
  Report Type: Spontaneous
  Country: CA (occurrence: CA)
  Receive Date: 20191008
  Receipt Date: 20191008
  Transmission Date: 20200122
  Serious: Yes (Other)
  Sender: FDA-Public Use
  Company Number: CA-ANIPHARMA-2019-CA-001306

PATIENT
  Age: 79 Year
  Sex: Male
  Weight: 81.63 kg

DRUGS (6)
  1. ASPIRIN. [Concomitant]
     Active Substance: ASPIRIN
     Dosage: UNKNOWN
     Route: 065
  2. SYNTHROID [Concomitant]
     Active Substance: LEVOTHYROXINE SODIUM
     Dosage: UNKNOWN
     Route: 065
  3. LOVASTATIN. [Concomitant]
     Active Substance: LOVASTATIN
     Dosage: UNKNOWN
     Route: 065
  4. ATENOLOL. [Suspect]
     Active Substance: ATENOLOL
     Dosage: UNKNOWN
     Route: 065
  5. PROPRANOLOL EXTENDED RELEASE CAPSULES (NON-SPECIFIC) [Suspect]
     Active Substance: PROPRANOLOL HYDROCHLORIDE
     Indication: PRODUCT USED FOR UNKNOWN INDICATION
     Dosage: UNKNOWN
     Route: 065
  6. AMIODARONE [Suspect]
     Active Substance: AMIODARONE
     Dosage: 200 MG, TWICE DAILY
     Route: 048

REACTIONS (13)
  - Sleep disorder [Unknown]
  - Dysphonia [Unknown]
  - Lung disorder [Unknown]
  - Nightmare [Unknown]
  - Photosensitivity reaction [Unknown]
  - Depression [Unknown]
  - Fatigue [Unknown]
  - Insomnia [Unknown]
  - Memory impairment [Unknown]
  - Peripheral coldness [Unknown]
  - Chest discomfort [Unknown]
  - Thyroid disorder [Unknown]
  - Visual impairment [Unknown]
